FAERS Safety Report 13472145 (Version 2)
Quarter: 2017Q3

REPORT INFORMATION
  Report Type: Spontaneous
  Country: GB (occurrence: GB)
  Receive Date: 20170424
  Receipt Date: 20170701
  Transmission Date: 20171127
  Serious: Yes (Other)
  Sender: FDA-Public Use
  Company Number: GB-AMGEN-GBRSP2017060288

PATIENT
  Age: 49 Year
  Sex: Male

DRUGS (6)
  1. FOLIC ACID. [Concomitant]
     Active Substance: FOLIC ACID
     Dosage: 5 MG, UNK
  2. ARANESP [Suspect]
     Active Substance: DARBEPOETIN ALFA
     Indication: PRODUCT USED FOR UNKNOWN INDICATION
     Dosage: 1200 MUG, UNK
     Route: 065
  3. OMEPRAZOLE. [Concomitant]
     Active Substance: OMEPRAZOLE
  4. SOLIRIS [Concomitant]
     Active Substance: ECULIZUMAB
     Dosage: 1200 MG, Q2WK
     Route: 065
  5. LANSOPRAZOLE. [Concomitant]
     Active Substance: LANSOPRAZOLE
     Dosage: 15 MG, UNK
  6. WARFARIN [Concomitant]
     Active Substance: WARFARIN

REACTIONS (5)
  - Haemodialysis [Recovered/Resolved]
  - Infection [Unknown]
  - Fatigue [Not Recovered/Not Resolved]
  - Haemolysis [Recovered/Resolved]
  - Paroxysmal nocturnal haemoglobinuria [Unknown]

NARRATIVE: CASE EVENT DATE: 2017
